FAERS Safety Report 6943862-6 (Version None)
Quarter: 2010Q3

REPORT INFORMATION
  Report Type: 
  Country: None (occurrence: None)
  Receive Date: 20100826
  Receipt Date: 20100819
  Transmission Date: 20110219
  Serious: Yes (Hospitalization)
  Sender: FDA-Public Use
  Company Number: A0876746A

PATIENT
  Age: 70 Year
  Sex: Male

DRUGS (9)
  1. ADVAIR DISKUS 100/50 [Suspect]
     Indication: CHRONIC OBSTRUCTIVE PULMONARY DISEASE
     Dosage: 1PUFF TWICE PER DAY
     Route: 055
     Dates: start: 20080101
  2. ALLOPURINOL [Concomitant]
  3. TOPROL-XL [Concomitant]
  4. COUMADIN [Concomitant]
  5. CARDURA [Concomitant]
  6. NEURONTIN [Concomitant]
  7. ZOCOR [Concomitant]
  8. NORCO [Concomitant]
  9. METOLAZONE [Concomitant]

REACTIONS (2)
  - OEDEMA [None]
  - RENAL DISORDER [None]
